FAERS Safety Report 22278698 (Version 1)
Quarter: 2023Q2

REPORT INFORMATION
  Report Type: Spontaneous
  Country: CN (occurrence: CN)
  Receive Date: 20230503
  Receipt Date: 20230503
  Transmission Date: 20230721
  Serious: Yes (Death, Other)
  Sender: FDA-Public Use
  Company Number: CN-JNJFOC-20230451761

PATIENT

DRUGS (1)
  1. IMBRUVICA [Suspect]
     Active Substance: IBRUTINIB
     Indication: Product used for unknown indication
     Route: 048

REACTIONS (47)
  - Sudden death [Fatal]
  - Cardiac failure [Fatal]
  - Ventricular dysfunction [Unknown]
  - Cardiac arrest [Fatal]
  - Arrhythmia [Fatal]
  - Cardiac valve disease [Unknown]
  - Supraventricular tachycardia [Unknown]
  - Cardiac dysfunction [Fatal]
  - Pericardial effusion [Fatal]
  - Ventricular tachyarrhythmia [Fatal]
  - Supraventricular extrasystoles [Unknown]
  - Pulmonary oedema [Fatal]
  - Atrioventricular block complete [Fatal]
  - Haemoptysis [Fatal]
  - Cardiac failure congestive [Fatal]
  - Ventricular tachycardia [Fatal]
  - Chest pain [Fatal]
  - Pericarditis [Fatal]
  - Atrioventricular block second degree [Unknown]
  - Cardiac tamponade [Fatal]
  - Heart valve incompetence [Unknown]
  - Atrioventricular block [Unknown]
  - Cardiomegaly [Unknown]
  - Arrhythmia supraventricular [Fatal]
  - Ascites [Fatal]
  - Peripheral swelling [Fatal]
  - Ventricular arrhythmia [Fatal]
  - Oedema peripheral [Fatal]
  - Dilated cardiomyopathy [Fatal]
  - Tachyarrhythmia [Unknown]
  - Cardiac procedure complication [Fatal]
  - Cardiac fibrillation [Fatal]
  - Cardiomyopathy [Fatal]
  - Cardiotoxicity [Fatal]
  - Left atrial dilatation [Unknown]
  - Atrial flutter [Fatal]
  - Atrial fibrillation [Fatal]
  - Aortic valve disease [Unknown]
  - Cardiac flutter [Fatal]
  - Acute coronary syndrome [Fatal]
  - Coronary artery occlusion [Fatal]
  - Angina pectoris [Fatal]
  - Dizziness [Fatal]
  - Myocardial infarction [Fatal]
  - Pericardial haemorrhage [Fatal]
  - Cardiac disorder [Fatal]
  - Aortic valve stenosis [Unknown]
